FAERS Safety Report 9889211 (Version 2)
Quarter: 2014Q1

REPORT INFORMATION
  Report Type: Report from Study
  Country: US (occurrence: US)
  Receive Date: 20140211
  Receipt Date: 20140211
  Transmission Date: 20141002
  Serious: Yes (Hospitalization, Other)
  Sender: FDA-Public Use
  Company Number: US-ABBVIE-13P-163-1076538-00

PATIENT
  Sex: Female
  Weight: 70.2 kg

DRUGS (6)
  1. HUMIRA [Suspect]
     Indication: CROHN^S DISEASE
     Dates: start: 20121030, end: 20130307
  2. HUMIRA [Suspect]
     Dates: start: 2013
  3. CLONODINE [Concomitant]
  4. AZATHIOPRINE [Concomitant]
  5. GABAPENTIN [Concomitant]
     Dosage: UP TO 5 TIMES A DAY
  6. CONCERTA ER [Concomitant]
     Indication: PRODUCT USED FOR UNKNOWN INDICATION

REACTIONS (7)
  - Ovarian cyst [Unknown]
  - Dysfunctional uterine bleeding [Unknown]
  - Dysmenorrhoea [Unknown]
  - Abdominal adhesions [Unknown]
  - Post procedural infection [Unknown]
  - Abdominal adhesions [Unknown]
  - Pelvic adhesions [Unknown]
